FAERS Safety Report 18037649 (Version 2)
Quarter: 2020Q4

REPORT INFORMATION
  Report Type: Spontaneous
  Country: US (occurrence: US)
  Receive Date: 20200717
  Receipt Date: 20201015
  Transmission Date: 20210113
  Serious: No
  Sender: FDA-Public Use
  Company Number: US-SA-2020SA185151

PATIENT

DRUGS (1)
  1. DUPIXENT [Suspect]
     Active Substance: DUPILUMAB
     Indication: DERMATITIS ATOPIC
     Dosage: 300 MG, QOW
     Route: 058
     Dates: start: 20180628

REACTIONS (4)
  - Dermatitis atopic [Not Recovered/Not Resolved]
  - Dermatitis [Unknown]
  - Unevaluable event [Not Recovered/Not Resolved]
  - Milia [Unknown]

NARRATIVE: CASE EVENT DATE: 20200713
